FAERS Safety Report 4800103-3 (Version None)
Quarter: 2005Q4

REPORT INFORMATION
  Report Type: 
  Country: None (occurrence: None)
  Receive Date: 20051012
  Receipt Date: 20051012
  Transmission Date: 20060501
  Serious: Yes (Hospitalization)
  Sender: FDA-Public Use
  Company Number: None

PATIENT
  Sex: Female
  Weight: 79.5 kg

DRUGS (4)
  1. ADRIAMYCIN PFS [Suspect]
     Indication: BREAST CANCER
     Dosage: SEE IMAGE
     Dates: start: 20050909
  2. CYTOXAN [Suspect]
     Dosage: SEE IMAGE
  3. G-CSF [Suspect]
     Dosage: SEE IMAGE
     Dates: start: 20050730, end: 20050922
  4. TAXOL [Suspect]
     Dosage: SEE IMAGE

REACTIONS (10)
  - ASPARTATE AMINOTRANSFERASE INCREASED [None]
  - BLOOD ALKALINE PHOSPHATASE INCREASED [None]
  - HERPES ZOSTER [None]
  - ORAL INTAKE REDUCED [None]
  - PYREXIA [None]
  - RASH PRURITIC [None]
  - RASH VESICULAR [None]
  - RESPIRATORY FAILURE [None]
  - RESPIRATORY TRACT CONGESTION [None]
  - WHITE BLOOD CELL COUNT INCREASED [None]
